FAERS Safety Report 5443828-1 (Version None)
Quarter: 2007Q3

REPORT INFORMATION
  Report Type: 
  Country: None (occurrence: None)
  Receive Date: 20070905
  Receipt Date: 20070824
  Transmission Date: 20080115
  Serious: Yes (Other)
  Sender: FDA-Public Use
  Company Number: GB-PFIZER INC-2007071425

PATIENT
  Age: 64 Year
  Sex: Male

DRUGS (8)
  1. VARENICLINE TABLETS [Suspect]
     Indication: SMOKING CESSATION THERAPY
     Route: 048
     Dates: start: 20070303, end: 20070304
  2. BENDROFLUMETHIAZIDE [Concomitant]
     Route: 048
  3. FLUTICASONE PROPIONATE [Concomitant]
     Route: 055
  4. LISINOPRIL [Concomitant]
     Route: 048
  5. SALMETEROL [Concomitant]
     Route: 055
  6. SIMVASTATIN [Concomitant]
     Route: 048
  7. TIOTROPIUM BROMIDE [Concomitant]
     Route: 055
  8. VENTOLIN [Concomitant]
     Dosage: FREQ:AS NECESSARY
     Route: 055

REACTIONS (2)
  - LIP SWELLING [None]
  - SWELLING FACE [None]
